FAERS Safety Report 4688692-3 (Version None)
Quarter: 2005Q2

REPORT INFORMATION
  Report Type: 
  Country: None (occurrence: None)
  Receive Date: 20050613
  Receipt Date: 20040507
  Transmission Date: 20051028
  Serious: Yes (Death, Life-Threatening, Hospitalization)
  Sender: FDA-Public Use
  Company Number: PHHO2004US06790

PATIENT
  Age: 59 Year
  Sex: Female
  Weight: 76 kg

DRUGS (20)
  1. NEORAL [Suspect]
     Indication: RENAL TRANSPLANT
     Dosage: 150 MG, BID
  2. NEORAL [Suspect]
     Dosage: 150 MG, BID
  3. NEORAL [Suspect]
     Dosage: 300 MG, BID
  4. PREDNISONE TAB [Concomitant]
     Indication: RENAL TRANSPLANT
     Dosage: NOT REPORTED
     Route: 048
  5. HUMULIN [Concomitant]
  6. PROCRIT [Concomitant]
  7. VALCYTE [Concomitant]
  8. LASIX [Concomitant]
  9. ALPHAGAN [Concomitant]
  10. DIFLUCAN [Concomitant]
  11. SEPTRA [Concomitant]
  12. COLACE [Concomitant]
  13. PEPCID [Concomitant]
  14. NIFEREX [Concomitant]
  15. CARDIZEM [Concomitant]
  16. INSULIN [Concomitant]
  17. ALCOHOL [Concomitant]
  18. FTY720 VS MYCOPHENOLATE MOFETIL [Suspect]
     Indication: RENAL TRANSPLANT
     Dosage: UNK, UNK
     Route: 048
     Dates: start: 20040210
  19. LIPITOR [Concomitant]
     Dosage: 10 MG, QD
     Route: 048
  20. NEXIUM [Concomitant]
     Route: 048

REACTIONS (27)
  - ANAEMIA [None]
  - ASTHENIA [None]
  - BLOOD CREATININE INCREASED [None]
  - CEREBRAL ARTERY OCCLUSION [None]
  - CEREBRAL INFARCTION [None]
  - CEREBROVASCULAR ACCIDENT [None]
  - DEATH [None]
  - DIARRHOEA [None]
  - DIASTOLIC DYSFUNCTION [None]
  - DUODENITIS [None]
  - DYSURIA [None]
  - EROSIVE OESOPHAGITIS [None]
  - FACIAL PALSY [None]
  - FEEDING TUBE COMPLICATION [None]
  - GASTRIC ULCER [None]
  - GASTRITIS [None]
  - GASTROINTESTINAL HAEMORRHAGE [None]
  - GASTROINTESTINAL ULCER [None]
  - GENERAL NUTRITION DISORDER [None]
  - GENERAL PHYSICAL HEALTH DETERIORATION [None]
  - HAEMATURIA [None]
  - HEMIPLEGIA [None]
  - MELAENA [None]
  - MENTAL IMPAIRMENT [None]
  - PROCTALGIA [None]
  - TROPONIN INCREASED [None]
  - VOMITING [None]
